FAERS Safety Report 15201137 (Version 15)
Quarter: 2022Q1

REPORT INFORMATION
  Report Type: Spontaneous
  Country: US (occurrence: US)
  Receive Date: 20180726
  Receipt Date: 20220228
  Transmission Date: 20220423
  Serious: No
  Sender: FDA-Public Use
  Company Number: US-PFIZER INC-2018299594

PATIENT
  Age: 66 Year
  Sex: Female
  Weight: 63 kg

DRUGS (9)
  1. LYRICA [Suspect]
     Active Substance: PREGABALIN
     Indication: Neuralgia
     Dosage: 100 MG, 3X/DAY
     Route: 048
  2. LYRICA [Suspect]
     Active Substance: PREGABALIN
     Indication: Neuropathy peripheral
     Dosage: 200 MG, 3X/DAY
     Route: 048
     Dates: start: 2015
  3. LYRICA [Suspect]
     Active Substance: PREGABALIN
     Indication: Complex regional pain syndrome
     Dosage: 200 MG, 3X/DAY, (1 CAPSULE THREE TIMES A DAY IN THE MORNING, AT 2PM, AND AT NIGHT)
  4. LYRICA [Suspect]
     Active Substance: PREGABALIN
     Indication: Nerve injury
     Dosage: 200 MG, 3X/DAY, (ONE AROUND 7^O CLOCK, ONE AROUND 2^O CLOCK, ONE AROUND 10:30)
  5. LYRICA [Suspect]
     Active Substance: PREGABALIN
     Indication: Hypoaesthesia
  6. LYRICA [Suspect]
     Active Substance: PREGABALIN
     Indication: Paraesthesia
  7. LYRICA [Suspect]
     Active Substance: PREGABALIN
     Indication: Neuroma
  8. OMEPRAZOLE [Concomitant]
     Active Substance: OMEPRAZOLE
     Dosage: 60 MG, 2X/DAY
  9. TYLENOL [Concomitant]
     Active Substance: ACETAMINOPHEN
     Indication: Pain
     Dosage: UNK (650 MG 2 TABLET BY MOUTH AT NIGHT AND SOMETIMES DURING THE DAY IF THE PAIN IS NOT GOOD)
     Route: 048

REACTIONS (12)
  - Therapeutic product effect incomplete [Unknown]
  - Intentional product use issue [Unknown]
  - Weight increased [Unknown]
  - Fall [Unknown]
  - Ligament sprain [Not Recovered/Not Resolved]
  - Gait disturbance [Unknown]
  - Head injury [Unknown]
  - Balance disorder [Unknown]
  - Urinary tract infection [Unknown]
  - Malaise [Unknown]
  - Eye pain [Unknown]
  - Visual impairment [Unknown]
